FAERS Safety Report 25693510 (Version 2)
Quarter: 2025Q3

REPORT INFORMATION
  Report Type: Spontaneous
  Country: US (occurrence: US)
  Receive Date: 20250818
  Receipt Date: 20250818
  Transmission Date: 20251021
  Serious: No
  Sender: GALDERMA
  Company Number: US-GALDERMA-US2025011720

PATIENT

DRUGS (2)
  1. NEMLUVIO [Suspect]
     Active Substance: NEMOLIZUMAB-ILTO
     Indication: Neurodermatitis
     Route: 058
     Dates: start: 20250522, end: 20250522
  2. NEMLUVIO [Suspect]
     Active Substance: NEMOLIZUMAB-ILTO
     Route: 058
     Dates: start: 20250622, end: 20250622

REACTIONS (10)
  - Skin irritation [Unknown]
  - Rash [Unknown]
  - Skin swelling [Recovered/Resolved]
  - Arthralgia [Unknown]
  - Pyrexia [Unknown]
  - Fatigue [Unknown]
  - Hip arthroplasty [Unknown]
  - Skin discolouration [Unknown]
  - Incorrect dose administered [Recovered/Resolved]
  - Inappropriate schedule of product administration [Recovered/Resolved]

NARRATIVE: CASE EVENT DATE: 20250101
